FAERS Safety Report 20506427 (Version 1)
Quarter: 2022Q1

REPORT INFORMATION
  Report Type: Spontaneous
  Country: US (occurrence: None)
  Receive Date: 20220222
  Receipt Date: 20220222
  Transmission Date: 20220423
  Serious: Yes (Life-Threatening, Hospitalization, Disabling, Other)
  Sender: FDA-Public Use
  Company Number: None

PATIENT
  Age: 49 Year
  Sex: Female
  Weight: 49.5 kg

DRUGS (1)
  1. ENTYVIO [Suspect]
     Active Substance: VEDOLIZUMAB
     Indication: Crohn^s disease
     Dosage: OTHER FREQUENCY : INFUSED EVERY 8 WK;?
     Route: 042
     Dates: start: 20171214, end: 20180906

REACTIONS (12)
  - Anaphylactic reaction [None]
  - Cerebellar ataxia [None]
  - Cerebral atrophy [None]
  - Balance disorder [None]
  - Gait disturbance [None]
  - Cognitive disorder [None]
  - Dementia Alzheimer^s type [None]
  - Speech disorder [None]
  - Dysphagia [None]
  - Gait disturbance [None]
  - Loss of personal independence in daily activities [None]
  - Disturbance in attention [None]

NARRATIVE: CASE EVENT DATE: 20180906
